FAERS Safety Report 12286452 (Version 1)
Quarter: 2016Q2

REPORT INFORMATION
  Report Type: Spontaneous
  Country: CA (occurrence: CA)
  Receive Date: 20160420
  Receipt Date: 20160420
  Transmission Date: 20160815
  Serious: Yes (Other)
  Sender: FDA-Public Use
  Company Number: CA-AMGEN-CANSP2016047242

PATIENT
  Age: 55 Year
  Sex: Female

DRUGS (5)
  1. ORENCIA [Suspect]
     Active Substance: ABATACEPT
     Indication: PRODUCT USED FOR UNKNOWN INDICATION
     Dosage: UNK
     Route: 065
  2. GABAPENTIN. [Concomitant]
     Active Substance: GABAPENTIN
     Dosage: UNK
  3. ENBREL [Suspect]
     Active Substance: ETANERCEPT
     Indication: RHEUMATOID ARTHRITIS
     Dosage: UNK
     Route: 065
  4. PERCOCET [Concomitant]
     Active Substance: ACETAMINOPHEN\OXYCODONE HYDROCHLORIDE
     Dosage: UNK
  5. HUMIRA [Suspect]
     Active Substance: ADALIMUMAB
     Indication: PRODUCT USED FOR UNKNOWN INDICATION
     Dosage: UNK
     Route: 065

REACTIONS (11)
  - Gait disturbance [Unknown]
  - Wrist deformity [Not Recovered/Not Resolved]
  - Rheumatoid arthritis [Unknown]
  - Feeling abnormal [Unknown]
  - Osteoarthritis [Unknown]
  - Foot deformity [Not Recovered/Not Resolved]
  - Spinal fusion surgery [Unknown]
  - Osteoporosis [Unknown]
  - Finger deformity [Not Recovered/Not Resolved]
  - Drug ineffective [Unknown]
  - Activities of daily living impaired [Unknown]
